FAERS Safety Report 5059017-9 (Version None)
Quarter: 2006Q3

REPORT INFORMATION
  Report Type: 
  Country: None (occurrence: None)
  Receive Date: 20060719
  Receipt Date: 20060707
  Transmission Date: 20061208
  Serious: Yes (Death, Hospitalization)
  Sender: FDA-Public Use
  Company Number: 227149

PATIENT
  Age: 26 Year
  Sex: Female
  Weight: 109 kg

DRUGS (7)
  1. EFALIZUMAB (EFALIZUMAB) PWDR + SOLVENT, INJECTION SOLN, 125MG [Suspect]
     Indication: PSORIASIS
     Dosage: 1.1 ML, 1/WEEK, SUBCUTANEOUS
     Route: 058
     Dates: start: 20050622, end: 20060526
  2. EFALIZUMAB (EFALIZUMAB) PWDR + SOLVENT, INJECTION SOLN, 125MG [Suspect]
     Indication: PSORIASIS
     Dosage: 1.1 ML, 1/WEEK, SUBCUTANEOUS
     Route: 058
     Dates: start: 20060606
  3. CLOBEX [Concomitant]
  4. COUMADIN [Concomitant]
  5. PROTOPIC OINTMENT (TACROLIMUS) [Concomitant]
  6. WELLBUTRIN [Concomitant]
  7. TOPICAL STEROIDS (UNKNONW INGREDIENTS) (TOPICAL STEROIDS NOS) [Concomitant]

REACTIONS (1)
  - DEATH [None]
